FAERS Safety Report 14703697 (Version 1)
Quarter: 2018Q2

REPORT INFORMATION
  Report Type: Spontaneous
  Country: US (occurrence: US)
  Receive Date: 20180402
  Receipt Date: 20180402
  Transmission Date: 20180711
  Serious: No
  Sender: FDA-Public Use
  Company Number: US-MISSION PHARMACAL COMPANY-2044926

PATIENT
  Age: 27 Year
  Sex: Female

DRUGS (1)
  1. THIOLA [Suspect]
     Active Substance: TIOPRONIN
     Indication: CALCULUS URINARY
     Route: 065
     Dates: start: 20150812

REACTIONS (4)
  - Blood urine present [Unknown]
  - Renal colic [Unknown]
  - Drug ineffective [Unknown]
  - Oedematous kidney [Recovering/Resolving]

NARRATIVE: CASE EVENT DATE: 20180221
